FAERS Safety Report 8593543-0 (Version None)
Quarter: 2012Q3

REPORT INFORMATION
  Report Type: 
  Country: None (occurrence: None)
  Receive Date: 20120814
  Receipt Date: 20120807
  Transmission Date: 20120928
  Serious: Yes (Other)
  Sender: FDA-Public Use
  Company Number: US-PFIZER INC-2012193422

PATIENT
  Age: 67 Year
  Sex: Male

DRUGS (8)
  1. LIPITOR [Suspect]
     Dosage: 40 MG, 1X/DAY
     Route: 048
  2. ASPIRIN [Concomitant]
     Dosage: 325 MG, 1X/DAY
     Route: 048
  3. METOPROLOL TARTRATE [Concomitant]
     Dosage: 25 MG, 2X/DAY
     Route: 048
  4. OSTEO BI-FLEX [Concomitant]
     Dosage: 1500 MG/ 400, 1X/DAY
     Route: 048
  5. CLOPIDOGREL BISULFATE [Concomitant]
     Dosage: 75 MG, 1X/DAY
     Route: 048
  6. HYDROCHLOROTHIAZIDE [Concomitant]
     Dosage: 25 MG, 1X/DAY
     Route: 048
  7. LISINOPRIL [Concomitant]
     Dosage: 20 MG, 2X/DAY
     Route: 048
  8. NITROGLYCERIN [Concomitant]
     Dosage: 0.3 MG, UNK
     Route: 060

REACTIONS (5)
  - ACUTE MYOCARDIAL INFARCTION [None]
  - DYSLIPIDAEMIA [None]
  - CORONARY ARTERY DISEASE [None]
  - HYPERTENSION [None]
  - BONE DISORDER [None]
